FAERS Safety Report 25940392 (Version 1)
Quarter: 2025Q4

REPORT INFORMATION
  Report Type: Spontaneous
  Country: US (occurrence: None)
  Receive Date: 20251018
  Receipt Date: 20251018
  Transmission Date: 20260117
  Serious: No
  Sender: FDA-CTU
  Company Number: None

PATIENT
  Sex: Male

DRUGS (1)
  1. HUMIRA [Suspect]
     Active Substance: ADALIMUMAB
     Indication: Rheumatoid arthritis
     Dosage: 40 MG EVERY 14 DAYS SUBCUTANEOUS?
     Route: 058
     Dates: start: 20151020

REACTIONS (5)
  - Product distribution issue [None]
  - Product storage error [None]
  - Poor quality product administered [None]
  - Injection site pain [None]
  - Drug ineffective [None]
